FAERS Safety Report 9369263 (Version 1)
Quarter: 2013Q2

REPORT INFORMATION
  Report Type: Spontaneous
  Country: IT (occurrence: IT)
  Receive Date: 20130626
  Receipt Date: 20130626
  Transmission Date: 20140414
  Serious: Yes (Hospitalization, Other)
  Sender: FDA-Public Use
  Company Number: IT-ACCORD-018195

PATIENT
  Age: 46 Year
  Sex: Male

DRUGS (3)
  1. TACROLIMUS [Suspect]
     Indication: IMMUNOSUPPRESSION
     Dates: start: 2000
  2. MYCOPHENOLATE MOFETIL [Concomitant]
     Indication: IMMUNOSUPPRESSION
  3. PREDNISONE [Concomitant]
     Indication: IMMUNOSUPPRESSION

REACTIONS (8)
  - Mania [Recovered/Resolved]
  - Drug level increased [Recovered/Resolved]
  - Grand mal convulsion [Recovered/Resolved]
  - Fall [Unknown]
  - Diarrhoea [Recovering/Resolving]
  - Asthenia [Recovering/Resolving]
  - Vertigo [Recovering/Resolving]
  - Dysarthria [Recovering/Resolving]
